FAERS Safety Report 5698662-4 (Version None)
Quarter: 2008Q2

REPORT INFORMATION
  Report Type: 
  Country: None (occurrence: None)
  Receive Date: 20080408
  Receipt Date: 20070125
  Transmission Date: 20081010
  Serious: No
  Sender: FDA-Public Use
  Company Number: US-BAYER-US-2007-002627

PATIENT
  Age: 54 Year
  Sex: Female
  Weight: 70 kg

DRUGS (6)
  1. CLIMARA [Suspect]
     Indication: OESTROGEN REPLACEMENT THERAPY
     Route: 062
     Dates: start: 20070109
  2. SYNTHROID [Concomitant]
     Indication: HYPOTHYROIDISM
     Route: 048
  3. PROMETRIUM [Concomitant]
     Dates: start: 20070109
  4. AUGMENTIN /UNK/ [Concomitant]
     Indication: BRONCHITIS
     Route: 048
     Dates: start: 20060119
  5. XANAX [Concomitant]
     Dosage: UNIT DOSE: 0.05 MG
     Route: 048
  6. CLONAZEPAM [Concomitant]
     Dosage: UNIT DOSE: 1 MG
     Route: 048

REACTIONS (1)
  - ALOPECIA [None]
